FAERS Safety Report 8138700-2 (Version None)
Quarter: 2012Q1

REPORT INFORMATION
  Report Type: 
  Country: None (occurrence: None)
  Receive Date: 20120213
  Receipt Date: 20120129
  Transmission Date: 20120608
  Serious: Yes (Other)
  Sender: FDA-Public Use
  Company Number: 2012AT000057

PATIENT
  Age: 89 Year
  Sex: Female

DRUGS (5)
  1. AGGRENOX [Suspect]
     Indication: PRODUCT USED FOR UNKNOWN INDICATION
     Dosage: 1 TABLET, QD, PO
     Route: 048
     Dates: start: 20120101
  2. ISOKET (ISOSORBIDE DINITRATE) (20 MG) [Suspect]
     Indication: PRODUCT USED FOR UNKNOWN INDICATION
     Dosage: 80 MG, PO
     Route: 048
     Dates: start: 20120101
  3. VOLTAREN [Suspect]
     Indication: PRODUCT USED FOR UNKNOWN INDICATION
     Dosage: PO
     Route: 048
  4. NOVALGIN /00039501/ (METAMIZOLE SODIUIM) [Suspect]
     Indication: PRODUCT USED FOR UNKNOWN INDICATION
     Dosage: 12 MG, PO
     Route: 048
     Dates: start: 20120101
  5. NIFEDIPINE [Suspect]
     Indication: PRODUCT USED FOR UNKNOWN INDICATION
     Dosage: 160 MG, PO
     Route: 048
     Dates: start: 20120101

REACTIONS (4)
  - ABDOMINAL DISTENSION [None]
  - MIOSIS [None]
  - ALTERED STATE OF CONSCIOUSNESS [None]
  - SUICIDAL IDEATION [None]
